FAERS Safety Report 16281255 (Version 1)
Quarter: 2019Q2

REPORT INFORMATION
  Report Type: Spontaneous
  Country: CH (occurrence: CH)
  Receive Date: 20190507
  Receipt Date: 20190507
  Transmission Date: 20190711
  Serious: Yes (Hospitalization)
  Sender: FDA-Public Use
  Company Number: CH-TEVA-2019-CH-1046197

PATIENT
  Sex: Female
  Weight: 82 kg

DRUGS (13)
  1. SPIRICORT [Concomitant]
     Active Substance: PREDNISOLONE
     Dosage: 20 MG P.O.
     Route: 048
  2. DAFALGAN [Concomitant]
     Active Substance: ACETAMINOPHEN
     Dosage: 1000 MG P.O.
     Route: 048
  3. PANTOZOL CONTROL [Concomitant]
     Active Substance: PANTOPRAZOLE SODIUM
     Dosage: 20 MG P.O.
     Route: 048
  4. TRISEQUENS N [Concomitant]
     Dosage: DIFFERENT DOSAGE, DEPENDING ON THE PHASE
     Route: 050
  5. DILTIAZEM. [Suspect]
     Active Substance: DILTIAZEM
     Indication: SINUS NODE DYSFUNCTION
     Route: 048
     Dates: start: 20190326, end: 20190408
  6. AERIUS [Concomitant]
     Dosage: 5 MG P.O.
     Route: 048
  7. CONDROSULF [Concomitant]
     Active Substance: SODIUM CHONDROITIN SULFATE
     Dosage: 800 MG P.O.
     Route: 048
  8. CONCOR [Concomitant]
     Active Substance: BISOPROLOL FUMARATE
     Dosage: 10 MG P.O.
     Route: 048
  9. CANSARTAN [Concomitant]
     Active Substance: CANDESARTAN CILEXETIL
     Dosage: 8 MG P.O.
     Route: 048
  10. ELIQUIS [Concomitant]
     Active Substance: APIXABAN
     Dosage: 5 MG P.O.
     Route: 048
  11. EUTHYROX [Concomitant]
     Active Substance: LEVOTHYROXINE SODIUM
     Dosage: 0.075 MG P.O
     Route: 048
  12. TOREM [Concomitant]
     Active Substance: TORSEMIDE
     Dosage: 10 MG P.O
     Route: 048
  13. NOVALGIN (METAMIZOLE SODIUM) [Concomitant]
     Active Substance: METAMIZOLE SODIUM
     Dosage: 500 MG P.O
     Route: 048

REACTIONS (2)
  - Rash generalised [Recovering/Resolving]
  - Drug reaction with eosinophilia and systemic symptoms [Recovering/Resolving]
